FAERS Safety Report 13163774 (Version 2)
Quarter: 2017Q1

REPORT INFORMATION
  Report Type: Spontaneous
  Country: GB (occurrence: GB)
  Receive Date: 20170130
  Receipt Date: 20170201
  Transmission Date: 20170428
  Serious: Yes (Other)
  Sender: FDA-Public Use
  Company Number: GB-INDIVIOR LIMITED-INDV-098047-2017

PATIENT
  Age: 90 Year
  Sex: Female
  Weight: 62 kg

DRUGS (10)
  1. BUTRANS [Concomitant]
     Active Substance: BUPRENORPHINE
     Indication: PRODUCT USED FOR UNKNOWN INDICATION
     Dosage: 1 PATCH FOR ONE WEEK AND THEN REMOVE
     Route: 062
     Dates: start: 20160902, end: 20170109
  2. GLYCEROL [Concomitant]
     Active Substance: GLYCERIN
     Indication: CONSTIPATION
     Dosage: 1 DOSAGE FORM, AS NECESSARY
     Route: 054
     Dates: start: 20161229, end: 20161230
  3. BUPRENORPHINE. [Suspect]
     Active Substance: BUPRENORPHINE
     Indication: PRODUCT USED FOR UNKNOWN INDICATION
     Dosage: UNK
     Route: 065
     Dates: start: 20170109
  4. LACTULOSE. [Concomitant]
     Active Substance: LACTULOSE
     Indication: PRODUCT USED FOR UNKNOWN INDICATION
     Dosage: 15 ML, BID
     Route: 065
     Dates: start: 20160928
  5. SENNA [Concomitant]
     Active Substance: SENNA LEAF\SENNOSIDES\SENNOSIDES A AND B
     Indication: PRODUCT USED FOR UNKNOWN INDICATION
     Dosage: 32 DF, 1 OR 2 EVERY NIGHT WHEN REQUIRED.
     Route: 065
     Dates: start: 20160801
  6. UNIROID [Concomitant]
     Indication: PRODUCT USED FOR UNKNOWN INDICATION
     Dosage: UNK, USE UPTO THREE TIMES PER DAY
     Route: 065
     Dates: start: 20161229
  7. LANSOPRAZOLE. [Concomitant]
     Active Substance: LANSOPRAZOLE
     Indication: DYSPEPSIA
     Dosage: 1 OR 2 AS REQUESTED.
     Route: 065
     Dates: start: 20160801
  8. RECTOGESIC [Concomitant]
     Active Substance: NITROGLYCERIN
     Indication: PROCTALGIA
     Dosage: 1 DOSAGE FORM, BID
     Route: 065
     Dates: start: 20170103, end: 20170108
  9. KETOPROFEN. [Concomitant]
     Active Substance: KETOPROFEN
     Indication: PRODUCT USED FOR UNKNOWN INDICATION
     Dosage: 1 DOSAGE FORM , BID
     Route: 065
     Dates: start: 20160801
  10. PARACETAMOL [Concomitant]
     Active Substance: ACETAMINOPHEN
     Indication: PRODUCT USED FOR UNKNOWN INDICATION
     Dosage: 2 DOSAGE FORMS, 26 HOURLY WHEN REQUIRED
     Route: 065
     Dates: start: 20160801

REACTIONS (2)
  - Hallucination [Recovered/Resolved]
  - Somnolence [Recovered/Resolved]

NARRATIVE: CASE EVENT DATE: 20170109
